FAERS Safety Report 25072883 (Version 2)
Quarter: 2025Q3

REPORT INFORMATION
  Report Type: Report from Study
  Country: MX (occurrence: MX)
  Receive Date: 20250313
  Receipt Date: 20250826
  Transmission Date: 20251020
  Serious: Yes (Other)
  Sender: JOHNSON AND JOHNSON
  Company Number: MX-JNJFOC-20250314982

PATIENT
  Age: 42 Year
  Sex: Female
  Weight: 66.1 kg

DRUGS (1)
  1. SIMPONI [Suspect]
     Active Substance: GOLIMUMAB
     Indication: Ankylosing spondylitis
     Dosage: 50/0.5 MG/ML
     Route: 058
     Dates: start: 20230421

REACTIONS (3)
  - Facial paralysis [Recovered/Resolved]
  - Uterine leiomyoma [Not Recovered/Not Resolved]
  - Ovarian neoplasm [Not Recovered/Not Resolved]

NARRATIVE: CASE EVENT DATE: 20241125
